FAERS Safety Report 10175391 (Version 2)
Quarter: 2014Q2

REPORT INFORMATION
  Report Type: Spontaneous
  Country: TR (occurrence: TR)
  Receive Date: 20140515
  Receipt Date: 20140613
  Transmission Date: 20141212
  Serious: Yes (Other)
  Sender: FDA-Public Use
  Company Number: TR-BAXTER-2014BAX023141

PATIENT
  Age: 22 Year
  Sex: Male

DRUGS (1)
  1. ISOLYTE-M %5 DEKSTROZ [Suspect]
     Indication: PRODUCT USED FOR UNKNOWN INDICATION
     Route: 042

REACTIONS (4)
  - Pyrexia [Recovered/Resolved]
  - Urticaria [Recovered/Resolved]
  - Tachycardia [Recovered/Resolved]
  - Dizziness [Recovered/Resolved]
